FAERS Safety Report 11234930 (Version 1)
Quarter: 2015Q3

REPORT INFORMATION
  Report Type: Spontaneous
  Country: GB (occurrence: GB)
  Receive Date: 20150702
  Receipt Date: 20150702
  Transmission Date: 20151125
  Serious: Yes (Disabling)
  Sender: FDA-Public Use
  Company Number: GB-PFIZER INC-2015214190

PATIENT
  Age: 87 Year
  Sex: Female

DRUGS (3)
  1. SPIRONOLACTONE. [Suspect]
     Active Substance: SPIRONOLACTONE
     Dosage: 100 MG, 1X/DAY
  2. DIGOXIN. [Suspect]
     Active Substance: DIGOXIN
     Dosage: 125 ?G, 1X/DAY
  3. DULOXETINE. [Suspect]
     Active Substance: DULOXETINE
     Dosage: 20 MG, 1X/DAY

REACTIONS (2)
  - Rash morbilliform [Recovering/Resolving]
  - Urticaria [Recovering/Resolving]
